FAERS Safety Report 4605997-2 (Version None)
Quarter: 2005Q1

REPORT INFORMATION
  Report Type: 
  Country: None (occurrence: None)
  Receive Date: 20050311
  Receipt Date: 20050301
  Transmission Date: 20050727
  Serious: Yes (Other)
  Sender: FDA-Public Use
  Company Number: US-GLAXOSMITHKLINE-A0547711A

PATIENT
  Age: 55 Year
  Sex: Female
  Weight: 104.5 kg

DRUGS (4)
  1. NICODERM CQ [Suspect]
     Route: 062
     Dates: start: 20050103, end: 20050211
  2. LIPITOR [Concomitant]
     Dosage: 10MG PER DAY
  3. ZOLOFT [Concomitant]
     Dosage: 50NG PER DAY
  4. ASPIRIN [Concomitant]
     Dosage: 81MG PER DAY

REACTIONS (11)
  - ANGIONEUROTIC OEDEMA [None]
  - APPLICATION SITE PRURITUS [None]
  - BRONCHOSPASM [None]
  - COUGH [None]
  - FATIGUE [None]
  - MEDICATION ERROR [None]
  - OEDEMA PERIPHERAL [None]
  - PARAESTHESIA [None]
  - SENSATION OF FOREIGN BODY [None]
  - THROAT TIGHTNESS [None]
  - WEIGHT INCREASED [None]
